FAERS Safety Report 11044487 (Version 1)
Quarter: 2015Q2

REPORT INFORMATION
  Report Type: Report from Study
  Country: DE (occurrence: DE)
  Receive Date: 20150417
  Receipt Date: 20150417
  Transmission Date: 20150821
  Serious: Yes (Other)
  Sender: FDA-Public Use
  Company Number: DE-BAYER-2015-122127

PATIENT
  Sex: Female

DRUGS (1)
  1. MIRENA [Suspect]
     Active Substance: LEVONORGESTREL
     Indication: CONTRACEPTION
     Dosage: 20 MCG/24HR, CONT
     Route: 015
     Dates: start: 201405, end: 201502

REACTIONS (14)
  - Anxiety [None]
  - Dyspnoea [None]
  - Dizziness [None]
  - Headache [None]
  - Panic attack [None]
  - Sleep disorder [None]
  - Nausea [None]
  - Breast mass [None]
  - Sensation of foreign body [None]
  - Malaise [None]
  - Apathy [None]
  - Depressed mood [None]
  - Withdrawal bleed [None]
  - Hyperhidrosis [None]

NARRATIVE: CASE EVENT DATE: 201409
